FAERS Safety Report 24832287 (Version 2)
Quarter: 2025Q1

REPORT INFORMATION
  Report Type: Spontaneous
  Country: FR (occurrence: FR)
  Receive Date: 20250110
  Receipt Date: 20250129
  Transmission Date: 20250408
  Serious: Yes (Life-Threatening, Hospitalization, Disabling)
  Sender: AMERICAN REGENT
  Company Number: FR-AMERICAN REGENT INC-2025000092

PATIENT
  Age: 73 Year
  Sex: Female
  Weight: 63 kg

DRUGS (5)
  1. FERINJECT [Suspect]
     Active Substance: FERRIC CARBOXYMALTOSE
     Indication: Orthopaedic procedure
     Route: 042
     Dates: start: 20240206, end: 20240206
  2. EPREX [Suspect]
     Active Substance: ERYTHROPOIETIN
     Indication: Orthopaedic procedure
     Route: 065
     Dates: start: 20240207, end: 20240207
  3. EPREX [Suspect]
     Active Substance: ERYTHROPOIETIN
     Route: 065
     Dates: start: 20240213, end: 20240213
  4. INDAPAMIDE\PERINDOPRIL ARGININE [Concomitant]
     Active Substance: INDAPAMIDE\PERINDOPRIL ARGININE
     Indication: Product used for unknown indication
     Route: 065
  5. OMEPRAZOLE [Concomitant]
     Active Substance: OMEPRAZOLE
     Indication: Product used for unknown indication
     Route: 065

REACTIONS (1)
  - Cerebral venous thrombosis [Recovered/Resolved]

NARRATIVE: CASE EVENT DATE: 20240214
